FAERS Safety Report 4977379-5 (Version None)
Quarter: 2006Q2

REPORT INFORMATION
  Report Type: 
  Country: None (occurrence: None)
  Receive Date: 20060419
  Receipt Date: 20050228
  Transmission Date: 20061013
  Serious: Yes (Hospitalization, Other)
  Sender: FDA-Public Use
  Company Number: US-MERCK-0503USA00263

PATIENT
  Age: 61 Year
  Sex: Male
  Weight: 85 kg

DRUGS (6)
  1. VIOXX [Suspect]
     Indication: ARTHRALGIA
     Route: 048
     Dates: start: 20020705, end: 20041216
  2. VIOXX [Suspect]
     Indication: BACK PAIN
     Route: 048
     Dates: start: 20020705, end: 20041216
  3. ALLERGENIC EXTRACT [Concomitant]
     Indication: HYPERSENSITIVITY
     Route: 051
  4. ASTELIN [Concomitant]
     Indication: HYPERSENSITIVITY
     Route: 065
  5. RHINOCORT [Concomitant]
     Route: 065
  6. PSEUDOVENT [Concomitant]
     Route: 065

REACTIONS (13)
  - ARTERIOSCLEROSIS CORONARY ARTERY [None]
  - CARPAL TUNNEL SYNDROME [None]
  - CONVULSION [None]
  - CORONARY ARTERY OCCLUSION [None]
  - HYPERLIPIDAEMIA [None]
  - HYPERTENSION [None]
  - JOINT INJURY [None]
  - JOINT SPRAIN [None]
  - MYOCARDIAL INFARCTION [None]
  - POLYCYTHAEMIA [None]
  - SINUS DISORDER [None]
  - SINUSITIS [None]
  - TRANSIENT ISCHAEMIC ATTACK [None]
